FAERS Safety Report 6925886-8 (Version None)
Quarter: 2010Q3

REPORT INFORMATION
  Report Type: 
  Country: None (occurrence: None)
  Receive Date: 20100813
  Receipt Date: 20100813
  Transmission Date: 20110219
  Serious: Yes (Hospitalization)
  Sender: FDA-Public Use
  Company Number: None

PATIENT
  Age: 51 Year
  Sex: Male
  Weight: 93 kg

DRUGS (2)
  1. CETIRIZINE HCL [Suspect]
     Indication: HYPERSENSITIVITY
     Dates: start: 20100506, end: 20100507
  2. ACETAMINOPHEN/PSEUDOEPHEDRINE [Suspect]
     Indication: RESPIRATORY DISORDER

REACTIONS (8)
  - ABDOMINAL PAIN [None]
  - DIARRHOEA [None]
  - DIZZINESS [None]
  - DRUG HYPERSENSITIVITY [None]
  - DYSPHAGIA [None]
  - PARAESTHESIA [None]
  - PYREXIA [None]
  - TOXIC EPIDERMAL NECROLYSIS [None]
